FAERS Safety Report 9852913 (Version 1)
Quarter: 2014Q1

REPORT INFORMATION
  Report Type: Spontaneous
  Country: FR (occurrence: None)
  Receive Date: 20140127
  Receipt Date: 20140127
  Transmission Date: 20141002
  Serious: Yes (Hospitalization)
  Sender: FDA-Public Use
  Company Number: DSM-2014-00052

PATIENT
  Age: 56 Year
  Sex: Male

DRUGS (6)
  1. COOLMETEC [Suspect]
     Indication: HYPERTENSION
     Route: 048
     Dates: start: 201310
  2. NADOLOL [Suspect]
     Indication: HYPERTENSION
  3. OMEPRAZOLE (OMEPRAZOLE) (OMEPRAZOLE) [Suspect]
     Indication: GASTROOESOPHAGEAL REFLUX DISEASE
  4. PREVISCAN(FLUINDIONE) (20 MILLIGRAM TABLET) (FLUINIDONE) [Concomitant]
  5. ATORVASTATIN (ATORVASATIN) (ATORVASTATIN) [Concomitant]
  6. KEPPRA (LEVETIRACETAM) (250 MILLIGRAM, TABLET) (LEVETIRACETAM) [Concomitant]

REACTIONS (13)
  - Orthostatic hypotension [None]
  - Muscle spasms [None]
  - Anaemia [None]
  - Hypocalcaemia [None]
  - Hypocalciuria [None]
  - Hypomagnesaemia [None]
  - Hypoparathyroidism [None]
  - Dizziness [None]
  - Tremor [None]
  - Paraesthesia [None]
  - Anxiety [None]
  - Diarrhoea [None]
  - Back pain [None]
